FAERS Safety Report 14386967 (Version 2)
Quarter: 2019Q2

REPORT INFORMATION
  Report Type: Spontaneous
  Country: US (occurrence: US)
  Receive Date: 20180115
  Receipt Date: 20190628
  Transmission Date: 20190711
  Serious: Yes (Other)
  Sender: FDA-Public Use
  Company Number: US-SA-2017SA155737

PATIENT
  Age: 50 Year
  Sex: Female
  Weight: 90.71 kg

DRUGS (6)
  1. NEOSAR [Concomitant]
     Active Substance: CYCLOPHOSPHAMIDE
  2. LISINOPRIL. [Concomitant]
     Active Substance: LISINOPRIL
  3. TAXOTERE [Suspect]
     Active Substance: DOCETAXEL
     Dosage: UNK UNK,Q3W
     Route: 042
  4. VITAMINS NOS [Concomitant]
     Active Substance: VITAMINS
  5. TAXOTERE [Suspect]
     Active Substance: DOCETAXEL
     Indication: BREAST CANCER
     Dosage: UNK UNK,Q3W
     Route: 042
     Dates: start: 2014, end: 2014
  6. OMEPRAZOLE. [Concomitant]
     Active Substance: OMEPRAZOLE

REACTIONS (6)
  - Pain [Unknown]
  - Emotional distress [Unknown]
  - Psychological trauma [Unknown]
  - Impaired quality of life [Unknown]
  - Alopecia [Recovering/Resolving]
  - Anxiety [Unknown]
